FAERS Safety Report 5848432-9 (Version None)
Quarter: 2008Q3

REPORT INFORMATION
  Report Type: 
  Country: None (occurrence: None)
  Receive Date: 20080815
  Receipt Date: 20080815
  Transmission Date: 20090109
  Serious: Yes (Other)
  Sender: FDA-Public Use
  Company Number: None

PATIENT
  Age: 49 Year
  Sex: Female
  Weight: 95.2554 kg

DRUGS (2)
  1. LEVAQUIN [Suspect]
     Indication: EAR PAIN
     Dosage: 1 PILL DAILY PO
     Route: 048
     Dates: start: 20080804, end: 20080810
  2. LEVAQUIN [Suspect]
     Indication: HEADACHE
     Dosage: 1 PILL DAILY PO
     Route: 048
     Dates: start: 20080804, end: 20080810

REACTIONS (28)
  - ABDOMINAL PAIN UPPER [None]
  - ARTHRALGIA [None]
  - BACK PAIN [None]
  - BONE PAIN [None]
  - CHEST DISCOMFORT [None]
  - CHILLS [None]
  - COMMUNICATION DISORDER [None]
  - DIARRHOEA [None]
  - DIZZINESS [None]
  - DYSGEUSIA [None]
  - DYSPNOEA [None]
  - EAR PAIN [None]
  - EYE PAIN [None]
  - FACIAL PAIN [None]
  - FATIGUE [None]
  - FEELING HOT [None]
  - GLOSSODYNIA [None]
  - GRIP STRENGTH DECREASED [None]
  - HEADACHE [None]
  - JOINT STIFFNESS [None]
  - MALAISE [None]
  - MUSCULOSKELETAL PAIN [None]
  - NAUSEA [None]
  - NERVOUSNESS [None]
  - PAIN IN EXTREMITY [None]
  - SLEEP DISORDER DUE TO GENERAL MEDICAL CONDITION, INSOMNIA TYPE [None]
  - TREMOR [None]
  - VISUAL ACUITY REDUCED [None]
